FAERS Safety Report 7094621-8 (Version None)
Quarter: 2010Q4

REPORT INFORMATION
  Report Type: 
  Country: None (occurrence: None)
  Receive Date: 20101110
  Receipt Date: 20101103
  Transmission Date: 20110411
  Serious: Yes (Other)
  Sender: FDA-Public Use
  Company Number: CN-GENENTECH-309234

PATIENT
  Sex: Male

DRUGS (9)
  1. MABTHERA [Suspect]
     Indication: DIFFUSE LARGE B-CELL LYMPHOMA
     Dosage: UNK
     Route: 041
     Dates: start: 20070101
  2. MABTHERA [Suspect]
     Dosage: UNK
     Route: 041
  3. CYCLOPHOSPHAMIDE [Concomitant]
     Indication: DIFFUSE LARGE B-CELL LYMPHOMA
     Dosage: UNK
     Dates: start: 20070101
  4. CYCLOPHOSPHAMIDE [Concomitant]
     Dosage: UNK
  5. VINCRISTINE [Concomitant]
     Indication: DIFFUSE LARGE B-CELL LYMPHOMA
     Dosage: UNK
     Dates: start: 20070101
  6. VINCRISTINE [Concomitant]
     Dosage: UNK
  7. PREDNISONE [Concomitant]
     Indication: DIFFUSE LARGE B-CELL LYMPHOMA
     Dosage: UNK
     Dates: start: 20070101
  8. PREDNISONE [Concomitant]
     Dosage: UNK
  9. PHARMORUBICIN [Concomitant]
     Indication: DIFFUSE LARGE B-CELL LYMPHOMA
     Dosage: UNK

REACTIONS (5)
  - ASTIGMATISM [None]
  - DISEASE RECURRENCE [None]
  - MALIGNANT NEOPLASM PROGRESSION [None]
  - REFRACTION DISORDER [None]
  - RETINAL DEGENERATION [None]
